FAERS Safety Report 5740957-X (Version None)
Quarter: 2008Q2

REPORT INFORMATION
  Report Type: 
  Country: None (occurrence: None)
  Receive Date: 20080516
  Receipt Date: 20080508
  Transmission Date: 20081010
  Serious: Yes (Other)
  Sender: FDA-Public Use
  Company Number: AU-PFIZER INC-2008027515

PATIENT
  Sex: Male
  Weight: 75 kg

DRUGS (10)
  1. LIPITOR [Suspect]
     Indication: HYPERCHOLESTEROLAEMIA
     Route: 048
     Dates: start: 20060101, end: 20080101
  2. ASTRIX [Concomitant]
  3. AVAPRO [Concomitant]
  4. IMMUNOSUPPRESSIVE AGENTS [Concomitant]
  5. PERMAX [Concomitant]
  6. PANTOPRAZOLE SODIUM [Concomitant]
  7. SALAZOPYRIN EN [Concomitant]
  8. MINOCYCLINE HCL [Concomitant]
     Dosage: FREQ:ONE TWICE DAILY
  9. PANAMAX [Concomitant]
  10. TEMAZE [Concomitant]

REACTIONS (2)
  - AGGRESSION [None]
  - ANGER [None]
